FAERS Safety Report 13753343 (Version 1)
Quarter: 2017Q3

REPORT INFORMATION
  Report Type: Report from Study
  Country: None (occurrence: US)
  Receive Date: 20170714
  Receipt Date: 20170714
  Transmission Date: 20171127
  Serious: No
  Sender: FDA-Public Use
  Company Number: US-IPSEN BIOPHARMACEUTICALS, INC.-2013-1395

PATIENT
  Age: 10 Year
  Sex: Male
  Weight: 29.1 kg

DRUGS (1)
  1. INCRELEX [Suspect]
     Active Substance: MECASERMIN
     Indication: PRIMARY INSULIN LIKE GROWTH FACTOR-1 DEFICIENCY
     Route: 058
     Dates: start: 20130315

REACTIONS (8)
  - Pain in extremity [None]
  - Fatigue [None]
  - Feeling hot [Recovering/Resolving]
  - Feeling jittery [Recovering/Resolving]
  - Abdominal distension [None]
  - Injection site bruising [Not Recovered/Not Resolved]
  - Hyperhidrosis [Recovering/Resolving]
  - Dizziness [None]

NARRATIVE: CASE EVENT DATE: 201303
